FAERS Safety Report 8078649-7 (Version None)
Quarter: 2012Q1

REPORT INFORMATION
  Report Type: 
  Country: None (occurrence: None)
  Receive Date: 20120124
  Receipt Date: 20120112
  Transmission Date: 20120608
  Serious: Yes (Hospitalization)
  Sender: FDA-Public Use
  Company Number: 2012MA000613

PATIENT
  Sex: Male

DRUGS (2)
  1. FEVERALL [Suspect]
  2. NIMESULIDE (NIMESULIDE) [Suspect]

REACTIONS (1)
  - RENAL FAILURE ACUTE [None]
